FAERS Safety Report 4999751-X (Version None)
Quarter: 2006Q2

REPORT INFORMATION
  Report Type: 
  Country: None (occurrence: None)
  Receive Date: 20060511
  Receipt Date: 20060503
  Transmission Date: 20061013
  Serious: Yes (Life-Threatening)
  Sender: FDA-Public Use
  Company Number: FR-GLAXOSMITHKLINE-B0422371A

PATIENT
  Age: 57 Year
  Sex: Male

DRUGS (3)
  1. ZOVIRAX [Suspect]
     Indication: MENINGOENCEPHALITIS HERPETIC
     Dosage: 15MGK THREE TIMES PER DAY
     Route: 042
     Dates: start: 20060314
  2. AUGMENTIN '125' [Concomitant]
     Indication: PNEUMONIA ASPIRATION
     Dosage: 3G PER DAY
     Route: 042
     Dates: start: 20060315, end: 20060322
  3. FOSPHENYTOIN SODIUM [Concomitant]
     Indication: STATUS EPILEPTICUS
     Route: 042
     Dates: start: 20060314, end: 20060315

REACTIONS (11)
  - AGITATION [None]
  - BLADDER DISORDER [None]
  - CLONUS [None]
  - COMA [None]
  - CONFUSIONAL STATE [None]
  - CONVULSION [None]
  - DIALYSIS [None]
  - DRUG INEFFECTIVE [None]
  - OVERDOSE [None]
  - RENAL FAILURE ACUTE [None]
  - SOMNOLENCE [None]
